FAERS Safety Report 9253846 (Version 1)
Quarter: 2013Q2

REPORT INFORMATION
  Report Type: Spontaneous
  Country: IN (occurrence: IN)
  Receive Date: 20130425
  Receipt Date: 20130425
  Transmission Date: 20140414
  Serious: Yes (Other)
  Sender: FDA-Public Use
  Company Number: IN-ACCORD-017329

PATIENT
  Age: 7 Year
  Sex: 0

DRUGS (1)
  1. TACROLIMUS [Suspect]
     Indication: NEPHROTIC SYNDROME

REACTIONS (6)
  - Drug level increased [Recovered/Resolved]
  - Renal failure acute [Recovered/Resolved]
  - Hyperkalaemia [Unknown]
  - Blood pressure increased [Recovered/Resolved]
  - Tremor [Unknown]
  - Off label use [Unknown]
